FAERS Safety Report 13909428 (Version 5)
Quarter: 2022Q2

REPORT INFORMATION
  Report Type: Spontaneous
  Country: CA (occurrence: CA)
  Receive Date: 20170828
  Receipt Date: 20220624
  Transmission Date: 20220721
  Serious: Yes (Death, Hospitalization, Other)
  Sender: FDA-Public Use
  Company Number: CA-ACCORD-057680

PATIENT
  Age: 18 Year
  Sex: Female
  Weight: 63 kg

DRUGS (9)
  1. QUETIAPINE FUMARATE [Suspect]
     Active Substance: QUETIAPINE FUMARATE
     Dosage: APPROX 20 PILLS?FILM-COATED TABLET AND TABLET 25.0 MILLIGRAM
     Route: 048
  2. ACETAMINOPHEN [Suspect]
     Active Substance: ACETAMINOPHEN
     Route: 048
  3. ASPIRIN [Suspect]
     Active Substance: ASPIRIN
     Route: 048
  4. ALCOHOL [Suspect]
     Active Substance: ALCOHOL
     Dosage: UNSPECIFIED DOSE OF ETHANOL
     Route: 048
  5. DIPHENHYDRAMINE [Suspect]
     Active Substance: DIPHENHYDRAMINE
  6. PROPOFOL [Suspect]
     Active Substance: PROPOFOL
  7. CITALOPRAM [Concomitant]
     Active Substance: CITALOPRAM HYDROBROMIDE
     Dosage: 1 EVERY 1 DAYS
  8. ATOMOXETINE [Concomitant]
     Active Substance: ATOMOXETINE
     Dosage: 1 EVERY 1 DAYS
  9. ISONIAZID [Concomitant]
     Active Substance: ISONIAZID
     Dosage: 1 EVERY 1 DAYS

REACTIONS (10)
  - Overdose [Fatal]
  - Liver injury [Fatal]
  - Completed suicide [Fatal]
  - Atrial fibrillation [Fatal]
  - Renal tubular necrosis [Fatal]
  - Myocarditis [Fatal]
  - Cardiac arrest [Fatal]
  - Myalgia [Unknown]
  - Encephalopathy [Fatal]
  - Hepatic failure [Not Recovered/Not Resolved]
